FAERS Safety Report 8560032-9 (Version None)
Quarter: 2012Q3

REPORT INFORMATION
  Report Type: 
  Country: None (occurrence: None)
  Receive Date: 20120802
  Receipt Date: 20120731
  Transmission Date: 20120928
  Serious: Yes (Death)
  Sender: FDA-Public Use
  Company Number: US-PFIZER INC-2012144908

PATIENT

DRUGS (3)
  1. ZOLOFT [Suspect]
     Dosage: UNK
     Dates: start: 20050512
  2. CELEBREX [Suspect]
     Dosage: UNK
     Dates: start: 20050512
  3. LOPID [Suspect]
     Dosage: UNK
     Dates: start: 20050512

REACTIONS (1)
  - INTRACRANIAL ANEURYSM [None]
